FAERS Safety Report 7037520-X (Version None)
Quarter: 2010Q4

REPORT INFORMATION
  Report Type: 
  Country: None (occurrence: None)
  Receive Date: 20101011
  Receipt Date: 20100930
  Transmission Date: 20110411
  Serious: Yes (Death)
  Sender: FDA-Public Use
  Company Number: B0678306A

PATIENT
  Sex: Male
  Weight: 57.7 kg

DRUGS (16)
  1. SELZENTRY [Suspect]
     Indication: HIV INFECTION
     Dosage: 600MG PER DAY
     Route: 048
     Dates: start: 20100219
  2. INTELENCE [Suspect]
     Indication: HIV INFECTION
     Dosage: 400MG PER DAY
     Route: 048
     Dates: start: 20090219
  3. TRUVADA [Suspect]
     Indication: HIV INFECTION
     Dosage: 1TAB PER DAY
     Route: 048
     Dates: start: 20100219
  4. ISENTRESS [Suspect]
     Indication: HIV INFECTION
     Dosage: 800MG PER DAY
     Route: 065
     Dates: start: 20100219
  5. LANTUS [Concomitant]
     Route: 058
     Dates: start: 20080904
  6. LEXAPRO [Concomitant]
     Indication: DEPRESSION
     Route: 048
     Dates: start: 20080324
  7. XANAX [Concomitant]
     Indication: ANXIETY
     Route: 048
     Dates: start: 20080205
  8. VICODIN ES [Concomitant]
     Indication: ABDOMINAL PAIN
     Route: 048
     Dates: start: 20081002
  9. TRAZODONE HCL [Concomitant]
     Indication: INSOMNIA
     Route: 048
     Dates: start: 20090306
  10. SINGULAIR [Concomitant]
     Indication: CHRONIC OBSTRUCTIVE PULMONARY DISEASE
     Route: 048
     Dates: start: 20080131
  11. ALBUTEROL INHALER [Concomitant]
     Indication: CHRONIC OBSTRUCTIVE PULMONARY DISEASE
     Route: 055
     Dates: start: 20080131
  12. PREVACID [Concomitant]
     Route: 048
     Dates: start: 20090319
  13. BENTYL [Concomitant]
     Indication: IRRITABLE BOWEL SYNDROME
     Route: 048
     Dates: start: 20081030
  14. VITAMIN B-12 [Concomitant]
     Indication: FATIGUE
     Route: 030
     Dates: start: 20080131
  15. STARLIX [Concomitant]
     Route: 048
     Dates: start: 20080113
  16. BACTRIM DS [Concomitant]
     Route: 048
     Dates: start: 20090309

REACTIONS (1)
  - PANCREATIC CARCINOMA [None]
